FAERS Safety Report 15626838 (Version 5)
Quarter: 2020Q1

REPORT INFORMATION
  Report Type: Report from Study
  Country: BE (occurrence: BE)
  Receive Date: 20181116
  Receipt Date: 20200303
  Transmission Date: 20200409
  Serious: Yes (Hospitalization, Other)
  Sender: FDA-Public Use
  Company Number: BE-TEVA-2018-BE-975617

PATIENT
  Age: 69 Year
  Sex: Female
  Weight: 67 kg

DRUGS (13)
  1. DOXORUBICIN HYDROCHLORIDE. [Suspect]
     Active Substance: DOXORUBICIN HYDROCHLORIDE
     Dosage: 30 MG/M2, CYCLIC (EVERY 4 WEEKS); CYCLICAL
     Route: 042
     Dates: start: 20180903, end: 20180903
  2. DAFALGAN [Concomitant]
     Active Substance: ACETAMINOPHEN
  3. APOCARD [Concomitant]
     Active Substance: FLECAINIDE ACETATE
     Route: 065
  4. CARBOPLATIN. [Suspect]
     Active Substance: CARBOPLATIN
     Indication: OVARIAN CANCER
     Dosage: 5 AUC, CYCLIC
     Route: 042
     Dates: start: 20180903, end: 20180903
  5. LIXIANA [Concomitant]
     Active Substance: EDOXABAN TOSYLATE
  6. ZOLPIDEM [Concomitant]
     Active Substance: ZOLPIDEM TARTRATE
     Route: 065
  7. BLINDED THERAPY [Suspect]
     Active Substance: INVESTIGATIONAL PRODUCT
     Indication: OVARIAN CANCER
     Dosage: 5 MG/KG, 1 IN 1 WK
     Route: 042
     Dates: start: 20180917
  8. FARLETUZUMAB [Suspect]
     Active Substance: FARLETUZUMAB
     Indication: OVARIAN CANCER
     Dosage: BLINDED [10 MG/KG OR PLACEBO (1 IN 1 WK)]
     Route: 042
     Dates: start: 20180903, end: 20180910
  9. BLINDED THERAPY [Suspect]
     Active Substance: INVESTIGATIONAL PRODUCT
     Dosage: 10 MG/KG, CYCLIC (ONCE WEEKLY FOR 2 WEEKS OF TREATMENT)
     Route: 042
     Dates: start: 20180903, end: 20180910
  10. BISOPROLOL [Concomitant]
     Active Substance: BISOPROLOL
  11. DULCOLAX NOS [Concomitant]
     Active Substance: BISACODYL OR DOCUSATE SODIUM
  12. FARLETUZUMAB [Suspect]
     Active Substance: FARLETUZUMAB
     Route: 042
     Dates: start: 20180917, end: 20181126
  13. DOXORUBICIN HYDROCHLORIDE. [Suspect]
     Active Substance: DOXORUBICIN HYDROCHLORIDE
     Dosage: 30 MG/M2, CYCLIC (EVERY 4 WEEKS); CYCLICAL
     Route: 042
     Dates: start: 20180903

REACTIONS (7)
  - Frequent bowel movements [Unknown]
  - White blood cell count decreased [Recovered/Resolved]
  - Febrile neutropenia [Recovered/Resolved]
  - Anal haemorrhage [Unknown]
  - Anal incontinence [Unknown]
  - Anaemia [Recovering/Resolving]
  - Thrombocytopenia [Recovering/Resolving]

NARRATIVE: CASE EVENT DATE: 201809
